FAERS Safety Report 25530798 (Version 1)
Quarter: 2025Q3

REPORT INFORMATION
  Report Type: Spontaneous
  Country: EU (occurrence: EU)
  Receive Date: 20250708
  Receipt Date: 20250708
  Transmission Date: 20251020
  Serious: Yes (Other)
  Sender: AMGEN
  Company Number: EU-AMGEN-DEUSP2025131825

PATIENT

DRUGS (2)
  1. APREMILAST [Suspect]
     Active Substance: APREMILAST
     Indication: Eczema nummular
     Dosage: 30 MILLIGRAM, BID
     Route: 065
  2. APREMILAST [Suspect]
     Active Substance: APREMILAST
     Indication: Off label use

REACTIONS (25)
  - Pneumonia [Unknown]
  - Cataract [Unknown]
  - Abdominal distension [Unknown]
  - Abdominal pain upper [Unknown]
  - Diarrhoea [Unknown]
  - Flatulence [Unknown]
  - Nausea [Unknown]
  - Chest pain [Unknown]
  - Fatigue [Unknown]
  - Hordeolum [Unknown]
  - Upper respiratory tract infection [Unknown]
  - Hepatic enzyme increased [Unknown]
  - Decreased appetite [Unknown]
  - Musculoskeletal pain [Unknown]
  - Keratoacanthoma [Unknown]
  - Dizziness [Unknown]
  - Headache [Unknown]
  - Migraine [Unknown]
  - Eczema [Unknown]
  - Eczema weeping [Unknown]
  - Pruritus [Unknown]
  - Abdominal discomfort [Unknown]
  - Oedema peripheral [Unknown]
  - Drug ineffective for unapproved indication [Unknown]
  - Off label use [Unknown]
